FAERS Safety Report 9126419 (Version 1)
Quarter: 2013Q1

REPORT INFORMATION
  Report Type: Spontaneous
  Country: US (occurrence: US)
  Receive Date: 20130117
  Receipt Date: 20130117
  Transmission Date: 20140127
  Serious: Yes (Death)
  Sender: FDA-Public Use
  Company Number: US-JNJFOC-20130106585

PATIENT
  Age: 33 Year
  Sex: Female

DRUGS (7)
  1. TOPIRAMATE [Suspect]
     Indication: SUICIDE ATTEMPT
     Route: 048
  2. RISPERIDONE [Suspect]
     Indication: SUICIDE ATTEMPT
     Route: 048
  3. CYCLOBENZAPRINE [Suspect]
     Indication: SUICIDE ATTEMPT
     Route: 048
  4. CARISOPRODOL [Suspect]
     Indication: SUICIDE ATTEMPT
     Route: 048
  5. METHOCARBAMOL [Suspect]
     Indication: SUICIDE ATTEMPT
     Route: 048
  6. TRAZODONE [Suspect]
     Indication: SUICIDE ATTEMPT
     Route: 048
  7. ANTIHISTAMINE [Suspect]
     Indication: SUICIDE ATTEMPT
     Route: 048

REACTIONS (1)
  - Toxicity to various agents [Fatal]
